FAERS Safety Report 7408542-1 (Version None)
Quarter: 2011Q2

REPORT INFORMATION
  Report Type: 
  Country: None (occurrence: None)
  Receive Date: 20110412
  Receipt Date: 20110407
  Transmission Date: 20111010
  Serious: Yes (Hospitalization)
  Sender: FDA-Public Use
  Company Number: SE-PFIZER INC-2011077608

PATIENT
  Age: 82 Year
  Sex: Male

DRUGS (9)
  1. RAMIPRIL [Concomitant]
     Dosage: UNK
  2. SELOKEN [Concomitant]
     Dosage: UNK
  3. OMEPRAZOLE [Concomitant]
     Dosage: UNK
  4. TOVIAZ [Suspect]
     Indication: HYPERTONIC BLADDER
     Dosage: 8 MG, UNK
  5. SIMVASTATIN [Concomitant]
     Dosage: UNK
  6. SPIRONOLACTONE [Concomitant]
     Dosage: UNK
  7. TROMBYL [Concomitant]
     Dosage: UNK
  8. GAVISCON [Concomitant]
     Dosage: UNK
  9. IMPUGAN [Concomitant]
     Dosage: UNK

REACTIONS (2)
  - MICTURITION URGENCY [None]
  - POLLAKIURIA [None]
